FAERS Safety Report 9923945 (Version 1)
Quarter: 2014Q1

REPORT INFORMATION
  Report Type: Spontaneous
  Country: GB (occurrence: GB)
  Receive Date: 20140225
  Receipt Date: 20140225
  Transmission Date: 20141002
  Serious: Yes (Other)
  Sender: FDA-Public Use
  Company Number: PHHY2014GB019145

PATIENT
  Age: 6 Decade
  Sex: Male

DRUGS (2)
  1. DOXAZOSIN [Suspect]
     Indication: HYPERTENSION
     Dosage: 2 MG
     Route: 048
     Dates: start: 20090101, end: 20130101
  2. LOSARTAN POTASSIUM [Concomitant]

REACTIONS (4)
  - Sinus congestion [Recovered/Resolved]
  - Toothache [Recovered/Resolved]
  - Tinnitus [Recovered/Resolved with Sequelae]
  - Headache [Recovered/Resolved]
